FAERS Safety Report 5735327-4 (Version None)
Quarter: 2008Q2

REPORT INFORMATION
  Report Type: 
  Country: None (occurrence: None)
  Receive Date: 20080512
  Receipt Date: 20080502
  Transmission Date: 20081010
  Serious: Yes (Other)
  Sender: FDA-Public Use
  Company Number: GB-ABBOTT-08P-167-0450322-00

PATIENT
  Age: 28 Year
  Sex: Female

DRUGS (2)
  1. VALPROIC ACID [Suspect]
     Indication: EPILEPSY
  2. PHENYTOIN [Concomitant]
     Indication: CONVULSION
     Route: 065
     Dates: start: 19830422

REACTIONS (2)
  - ABORTION SPONTANEOUS [None]
  - VOMITING [None]
